FAERS Safety Report 6476381-4 (Version None)
Quarter: 2009Q4

REPORT INFORMATION
  Report Type: 
  Country: None (occurrence: None)
  Receive Date: 20091207
  Receipt Date: 20091124
  Transmission Date: 20100525
  Serious: Yes (Life-Threatening, Hospitalization)
  Sender: FDA-Public Use
  Company Number: DE-RANBAXY-2009RR-22690

PATIENT
  Age: 77 Year
  Sex: Female

DRUGS (6)
  1. ASPIRIN [Suspect]
     Indication: AORTIC VALVE STENOSIS
     Dosage: 100 MG, QD
     Route: 048
     Dates: end: 20080703
  2. FALITHROM ^HEXAL^ [Suspect]
     Indication: ATRIAL FIBRILLATION
     Route: 048
  3. VERAPAMIL [Suspect]
     Indication: HYPERTENSION
     Dosage: 60 MG, BID
     Route: 048
  4. ARELIX ^AVENTIS PHARMA^ [Concomitant]
     Indication: HYPERTENSION
     Dosage: 6 MG, QD
     Route: 048
  5. DIGITOXIN INJ [Concomitant]
     Indication: TACHYARRHYTHMIA
     Dosage: 0.07 MG, QD
     Route: 048
  6. LISINOPRIL [Concomitant]
     Indication: HYPERTENSION
     Dosage: 2.5 MG, QD
     Route: 048

REACTIONS (3)
  - DRUG INTERACTION [None]
  - GASTRIC ULCER HELICOBACTER [None]
  - GASTROINTESTINAL HAEMORRHAGE [None]
